FAERS Safety Report 24238646 (Version 1)
Quarter: 2024Q3

REPORT INFORMATION
  Report Type: Spontaneous
  Country: EU (occurrence: ES)
  Receive Date: 20240822
  Receipt Date: 20240822
  Transmission Date: 20241016
  Serious: Yes (Hospitalization)
  Sender: RADIUS PHARM
  Company Number: EU-RADIUS HEALTH INC.-2024ES006252

PATIENT
  Age: 78 Year
  Sex: Female

DRUGS (6)
  1. ABALOPARATIDE [Suspect]
     Active Substance: ABALOPARATIDE
     Indication: Osteoporosis
     Dosage: 80 MICROGRAM EVERY 24 HOURS
     Route: 058
     Dates: start: 20240701, end: 20240801
  2. LUMINAL [PHENOBARBITAL] [Concomitant]
     Indication: Epilepsy
     Dosage: 100 MILLIGRAM EVERY 12 HOUR(S)
     Route: 048
     Dates: start: 20120905
  3. CHOLECALCIFEROL [Concomitant]
     Active Substance: CHOLECALCIFEROL
     Indication: Product used for unknown indication
     Dosage: 25000 INTERNATIONAL UNIT EVERY 1 MONTH(S)
     Route: 048
     Dates: start: 20161215
  4. PHENYTOIN [Concomitant]
     Active Substance: PHENYTOIN
     Indication: Product used for unknown indication
     Dosage: 200 MILLIGRAM EVERY 12 HOUR(S)
     Dates: start: 20191216
  5. METFORMIN HYDROCHLORIDE\SITAGLIPTIN PHOSPHATE [Concomitant]
     Active Substance: METFORMIN HYDROCHLORIDE\SITAGLIPTIN PHOSPHATE
     Indication: Product used for unknown indication
     Dosage: 1 DOSAGE FORM EVERY 12 HOUR(S)
     Route: 048
     Dates: start: 20230717
  6. LANSOPRAZOLE [Concomitant]
     Active Substance: LANSOPRAZOLE
     Indication: Product used for unknown indication
     Dosage: 30 MILLGRAM EVERY 24 HOUR(S)
     Route: 048
     Dates: start: 20120905

REACTIONS (2)
  - Somnolence [Recovering/Resolving]
  - Altered state of consciousness [Recovering/Resolving]

NARRATIVE: CASE EVENT DATE: 20240701
